FAERS Safety Report 22044619 (Version 2)
Quarter: 2023Q1

REPORT INFORMATION
  Report Type: Spontaneous
  Country: US (occurrence: US)
  Receive Date: 20230228
  Receipt Date: 20230307
  Transmission Date: 20230418
  Serious: No
  Sender: FDA-Public Use
  Company Number: US-UNITED THERAPEUTICS-UNT-2023-004689

PATIENT
  Age: 69 Year
  Sex: Female
  Weight: 90.703 kg

DRUGS (6)
  1. REMODULIN [Suspect]
     Active Substance: TREPROSTINIL
     Indication: Pulmonary arterial hypertension
     Dosage: UNK, CONTINUING
     Route: 041
     Dates: end: 202302
  2. REMODULIN [Suspect]
     Active Substance: TREPROSTINIL
     Indication: Pulmonary arterial hypertension
     Dosage: 0.015 ?G/KG (REMUNITY SELF-FILL WITH 1.7 ML PER CASSETTE; AT A REMUNITY PUMP RATE 16 MCL PER HOUR),
     Route: 058
     Dates: start: 202302
  3. REMODULIN [Suspect]
     Active Substance: TREPROSTINIL
     Dosage: UNK, CONTINUING
     Route: 058
     Dates: start: 20230213
  4. REMODULIN [Suspect]
     Active Substance: TREPROSTINIL
     Indication: Pulmonary arterial hypertension
     Dosage: 0.015 ?G/KG (SELF-FILL CASSETTE WITH 1.7 ML; AT A PUMP RATE OF 16 MCL PER HOUR), CONTINUING
     Route: 058
     Dates: start: 202302
  5. AMBRISENTAN [Concomitant]
     Active Substance: AMBRISENTAN
     Indication: Product used for unknown indication
     Dosage: UNK
     Route: 065
  6. TADALAFIL [Concomitant]
     Active Substance: TADALAFIL
     Indication: Product used for unknown indication
     Dosage: UNK
     Route: 065

REACTIONS (10)
  - Headache [Not Recovered/Not Resolved]
  - Infusion site pain [Recovering/Resolving]
  - Fatigue [Unknown]
  - Poor quality sleep [Unknown]
  - Pain in extremity [Unknown]
  - Back pain [Unknown]
  - Intervertebral disc protrusion [Unknown]
  - Discomfort [Unknown]
  - Infusion site erythema [Unknown]
  - Infusion site warmth [Unknown]

NARRATIVE: CASE EVENT DATE: 20230201
